FAERS Safety Report 4614196-X (Version None)
Quarter: 2005Q1

REPORT INFORMATION
  Report Type: 
  Country: None (occurrence: None)
  Receive Date: 20050316
  Receipt Date: 20050307
  Transmission Date: 20050727
  Serious: Yes (Disabling)
  Sender: FDA-Public Use
  Company Number: 2005AC00407

PATIENT
  Sex: Male

DRUGS (5)
  1. BUDESONIDE + FORMOTEROL (SYMBICORT) [Suspect]
     Indication: ASTHMA
     Dosage: 2 PUFF BID IH
     Route: 055
  2. LIPITOR [Concomitant]
  3. TILDIEM RETARD [Concomitant]
  4. COZAAR [Concomitant]
  5. ZILORIC [Concomitant]

REACTIONS (4)
  - DEPRESSION [None]
  - DISTURBANCE IN ATTENTION [None]
  - FATIGUE [None]
  - SLEEP APNOEA SYNDROME [None]
